FAERS Safety Report 6034069-8 (Version None)
Quarter: 2009Q1

REPORT INFORMATION
  Report Type: 
  Country: None (occurrence: None)
  Receive Date: 20090108
  Receipt Date: 20081229
  Transmission Date: 20090719
  Serious: Yes (Other)
  Sender: FDA-Public Use
  Company Number: 2008US003330

PATIENT
  Age: 85 Year
  Sex: Female
  Weight: 54 kg

DRUGS (9)
  1. LEXISCAN [Suspect]
     Indication: SCAN MYOCARDIAL PERFUSION
     Dosage: 0.4 MG, UNK, UNK
     Dates: start: 20081203, end: 20081203
  2. TECHNETIUM (99M TC)         SESTAMIBI [Concomitant]
  3. ASPIRIN [Concomitant]
  4. PROPRANOLOL [Concomitant]
  5. LIPITOR [Concomitant]
  6. PRAZOSIN GITS [Concomitant]
  7. AVALIDE [Concomitant]
  8. ALENDRONAT (ALENDRONATE SODIUM) [Concomitant]
  9. FOSAMAX [Concomitant]

REACTIONS (7)
  - BRADYCARDIA [None]
  - COLD SWEAT [None]
  - DRY SKIN [None]
  - FEELING ABNORMAL [None]
  - MALAISE [None]
  - SENSATION OF FOREIGN BODY [None]
  - UNRESPONSIVE TO STIMULI [None]
